FAERS Safety Report 9508964 (Version 1)
Quarter: 2013Q1

REPORT INFORMATION
  Report Type: Spontaneous
  Country: US (occurrence: None)
  Receive Date: 20130305
  Receipt Date: 20130305
  Transmission Date: 20140127
  Serious: Yes (Other)
  Sender: FDA-Public Use
  Company Number: 163-21880-12081966

PATIENT
  Age: 40 Year
  Sex: Male
  Weight: 88.45 kg

DRUGS (12)
  1. REVLIMID [Suspect]
     Indication: PLASMA CELL MYELOMA
     Route: 048
     Dates: start: 20120710, end: 2012
  2. DEXAMETHASONE (DEXAMETHASONE) [Suspect]
     Indication: PRODUCT USED FOR UNKNOWN INDICATION
  3. VALACYCLOVIR (VALACICLOVIR HYDROCHLORIDE) [Concomitant]
  4. COUMADIN (WARFARIN SODIUM) [Concomitant]
  5. VELCADE (BORTEZOMIB) [Suspect]
     Indication: PRODUCT USED FOR UNKNOWN INDICATION
  6. PAMIDRONATE (PAMIDRONATE DISODIUM) [Concomitant]
  7. FENTANYL (FENTANYL) [Concomitant]
  8. ZOFRAN (ONDANSETRON HYDROCHLORIDE) [Concomitant]
  9. PRILOSEC [Concomitant]
  10. SENOKOT (SENNA FRUIT) [Concomitant]
  11. DILAUDID (HYDROMORPHONE HYDROCHLORIDE) [Concomitant]
  12. VITAMIN D (ERGOCALCIFEROL) [Concomitant]

REACTIONS (3)
  - Alopecia [None]
  - Alopecia [None]
  - Rash [None]
